FAERS Safety Report 10652355 (Version 1)
Quarter: 2014Q4

REPORT INFORMATION
  Report Type: Other
  Country: US (occurrence: US)
  Receive Date: 20141215
  Receipt Date: 20141215
  Transmission Date: 20150529
  Serious: Yes (Hospitalization)
  Sender: FDA-Public Use
  Company Number: US-ACORDA-ACO_107358_2014

PATIENT
  Sex: Female
  Weight: 76.19 kg

DRUGS (3)
  1. AMPYRA [Suspect]
     Active Substance: DALFAMPRIDINE
     Indication: GAIT DISTURBANCE
     Dosage: 10 MG, BID
     Route: 048
     Dates: start: 20140920, end: 2014
  2. GABAPENTIN. [Concomitant]
     Active Substance: GABAPENTIN
     Indication: PRODUCT USED FOR UNKNOWN INDICATION
     Dosage: UNK
     Route: 065
  3. AMPYRA [Suspect]
     Active Substance: DALFAMPRIDINE
     Dosage: 10 MG, BID
     Route: 048
     Dates: start: 20141027, end: 20141129

REACTIONS (8)
  - Joint swelling [Recovering/Resolving]
  - Oral pain [Recovering/Resolving]
  - Pneumonia [Recovered/Resolved]
  - Mouth swelling [Recovering/Resolving]
  - Peripheral swelling [Recovering/Resolving]
  - Insomnia [Recovering/Resolving]
  - Balance disorder [Unknown]
  - Back pain [Not Recovered/Not Resolved]

NARRATIVE: CASE EVENT DATE: 2014
